FAERS Safety Report 5675807-3 (Version None)
Quarter: 2008Q1

REPORT INFORMATION
  Report Type: 
  Country: None (occurrence: None)
  Receive Date: 20080321
  Receipt Date: 20080314
  Transmission Date: 20080703
  Serious: Yes (Life-Threatening)
  Sender: FDA-Public Use
  Company Number: JP-SANOFI-SYNTHELABO-A01200800896

PATIENT
  Age: 59 Year
  Sex: Male
  Weight: 70 kg

DRUGS (5)
  1. KYTRIL [Concomitant]
     Indication: PREMEDICATION
     Dosage: 3 MG
     Route: 042
     Dates: start: 20071220, end: 20080117
  2. ELPLAT [Suspect]
     Indication: RECTAL CANCER
     Dosage: 113.1 MG/BODY=65 MG/M2 IN INFUSION ON DAY 1
     Route: 041
     Dates: start: 20080117, end: 20080117
  3. ISOVORIN [Concomitant]
     Dosage: 174 MG/BODY=100 MG/M2 IN INFUSION ON DAYS 1 AND 2
     Route: 041
     Dates: start: 20080117, end: 20080117
  4. DECADRON [Concomitant]
     Indication: PREMEDICATION
     Dosage: 8 MG
     Route: 042
     Dates: start: 20071220, end: 20080117
  5. FLUOROURACIL [Concomitant]
     Dosage: 522MG/BODY=300MG/M2 IV BOLUS THEN 870 MG/BODY=500 MG/M2 AS CONTINUOUS INFUSION ON D1-D2
     Route: 042
     Dates: start: 20071220, end: 20071221

REACTIONS (1)
  - MYOCARDIAL INFARCTION [None]
